FAERS Safety Report 4565893-6 (Version None)
Quarter: 2005Q1

REPORT INFORMATION
  Report Type: 
  Country: None (occurrence: None)
  Receive Date: 20050131
  Receipt Date: 20041210
  Transmission Date: 20050727
  Serious: Yes (Other)
  Sender: FDA-Public Use
  Company Number: GRWYE274410DEC04

PATIENT
  Age: 17 Year
  Sex: Male

DRUGS (1)
  1. ENBREL [Suspect]
     Indication: JUVENILE ARTHRITIS
     Route: 058
     Dates: start: 20031201, end: 20041101

REACTIONS (2)
  - THERAPEUTIC RESPONSE UNEXPECTED [None]
  - TRANSAMINASES INCREASED [None]
